FAERS Safety Report 5897541-7 (Version None)
Quarter: 2008Q3

REPORT INFORMATION
  Report Type: 
  Country: None (occurrence: None)
  Receive Date: 20080925
  Receipt Date: 20080918
  Transmission Date: 20090109
  Serious: Yes (Other)
  Sender: FDA-Public Use
  Company Number: US-WYE-H06053308

PATIENT
  Sex: Male

DRUGS (2)
  1. PRISTIQ [Suspect]
     Indication: DEPRESSION
     Route: 048
     Dates: start: 20080912, end: 20080915
  2. VICODIN [Concomitant]
     Indication: TOOTHACHE
     Dosage: 4.5 MG EVERY 4-6 HOURS

REACTIONS (6)
  - ASTHENIA [None]
  - DISORIENTATION [None]
  - DRUG WITHDRAWAL SYNDROME [None]
  - FEELING JITTERY [None]
  - GAIT DISTURBANCE [None]
  - HYPERHIDROSIS [None]
